FAERS Safety Report 7502131-6 (Version None)
Quarter: 2011Q2

REPORT INFORMATION
  Report Type: 
  Country: None (occurrence: None)
  Receive Date: 20110525
  Receipt Date: 20110520
  Transmission Date: 20111010
  Serious: Yes (Life-Threatening)
  Sender: FDA-Public Use
  Company Number: IT-PFIZER INC-2010099522

PATIENT
  Age: 92 Year
  Sex: Female

DRUGS (4)
  1. LANSOPRAZOLE [Concomitant]
     Dosage: 30 MG, UNK
     Route: 048
  2. R42 [Concomitant]
     Indication: BONE PAIN
     Dosage: 45 DROPS DAILY
     Route: 048
     Dates: start: 20100701, end: 20100722
  3. ZOLOFT [Suspect]
     Indication: DEPRESSION
     Dosage: 25 MG DAILY
     Route: 048
  4. MODURETIC 5-50 [Concomitant]
     Dosage: 1 UNIT DOSE
     Route: 048

REACTIONS (3)
  - SOPOR [None]
  - HYPONATRAEMIA [None]
  - APATHY [None]
